FAERS Safety Report 20695384 (Version 4)
Quarter: 2022Q2

REPORT INFORMATION
  Report Type: Spontaneous
  Country: PL (occurrence: PL)
  Receive Date: 20220411
  Receipt Date: 20220506
  Transmission Date: 20220721
  Serious: Yes (Death, Life-Threatening, Hospitalization)
  Sender: FDA-Public Use
  Company Number: PL-SAMSUNG BIOEPIS-SB-2022-08674

PATIENT
  Age: 6 Year
  Sex: Male
  Weight: 16 kg

DRUGS (5)
  1. INFLIXIMAB [Suspect]
     Active Substance: INFLIXIMAB
     Indication: Colitis ulcerative
     Dosage: FIRST DOSE
     Route: 042
     Dates: start: 20220321, end: 20220321
  2. INFLIXIMAB [Suspect]
     Active Substance: INFLIXIMAB
     Dosage: SECOND DOSE
     Route: 042
     Dates: start: 20220404, end: 20220404
  3. IMURAN [Concomitant]
     Active Substance: AZATHIOPRINE
     Indication: Colitis ulcerative
     Dosage: ONE INTO 25 MG
     Route: 048
     Dates: start: 20220310
  4. PREDNISONE [Concomitant]
     Active Substance: PREDNISONE
     Indication: Colitis ulcerative
     Dosage: 7.5 MILLIGRAM TO 5 MILLIGRAM
     Route: 048
     Dates: start: 20220311
  5. PENTASA [Concomitant]
     Active Substance: MESALAMINE
     Indication: Colitis ulcerative
     Dosage: 2 TIMES 500MG
     Route: 048
     Dates: start: 20220221

REACTIONS (4)
  - Acute haemorrhagic leukoencephalitis [Fatal]
  - Brain death [Not Recovered/Not Resolved]
  - Respiratory failure [Unknown]
  - Suspected product quality issue [Unknown]

NARRATIVE: CASE EVENT DATE: 20220404
